FAERS Safety Report 7206644-6 (Version None)
Quarter: 2011Q1

REPORT INFORMATION
  Report Type: 
  Country: None (occurrence: None)
  Receive Date: 20110103
  Receipt Date: 20101222
  Transmission Date: 20110831
  Serious: Yes (Hospitalization, Other)
  Sender: FDA-Public Use
  Company Number: US-ELI_LILLY_AND_COMPANY-US200912001758

PATIENT
  Sex: Male

DRUGS (17)
  1. FUROSEMIDE [Concomitant]
     Dosage: 40 MG, UNK
  2. FENTANYL [Concomitant]
     Dosage: 150 MG, UNK
  3. NOVOLOG [Concomitant]
  4. FORTEO [Suspect]
     Indication: OSTEOPOROSIS
     Dosage: 20 UG, DAILY (1/D)
     Route: 058
  5. PREDNISONE [Concomitant]
     Dosage: 5 MG, 2/D
  6. FORTEO [Suspect]
     Dosage: 20 UG, DAILY (1/D)
     Dates: start: 20090308
  7. POTASSIUM [Concomitant]
     Dosage: 20 MEQ, UNK
  8. ACTOS [Concomitant]
     Dosage: 15 MG, UNK
  9. IRON [Concomitant]
     Dosage: 200 MG, UNK
  10. LEVOTHYROXINE [Concomitant]
     Dosage: 100 MG, UNK
  11. GABAPENTIN [Concomitant]
     Dosage: 300 MG, 3/D
  12. CARBIDOPA + LEVODOPA [Concomitant]
  13. CYMBALTA [Concomitant]
     Dosage: 60 MG, UNK
  14. METHADONE [Concomitant]
     Dosage: 5 MG, UNK
  15. ALPRAZOLAM [Concomitant]
     Dosage: 0.5 MG, UNK
  16. COUMADIN [Concomitant]
     Dosage: 2 MG, UNK
  17. MORPHINE SULFATE [Concomitant]
     Dosage: 15 MG, UNK

REACTIONS (14)
  - CEREBROVASCULAR ACCIDENT [None]
  - INTERVERTEBRAL DISC OPERATION [None]
  - HOSPITALISATION [None]
  - STAPHYLOCOCCAL SEPSIS [None]
  - OSTEOARTHRITIS [None]
  - STAPHYLOCOCCAL INFECTION [None]
  - RADICULITIS [None]
  - MYOCARDIAL INFARCTION [None]
  - SPINAL COMPRESSION FRACTURE [None]
  - POST LAMINECTOMY SYNDROME [None]
  - SACROILIITIS [None]
  - POLYNEUROPATHY [None]
  - SKIN ULCER [None]
  - RHEUMATOID ARTHRITIS [None]
